FAERS Safety Report 23111979 (Version 1)
Quarter: 2023Q4

REPORT INFORMATION
  Report Type: Spontaneous
  Country: PT (occurrence: KR)
  Receive Date: 20231026
  Receipt Date: 20231026
  Transmission Date: 20240110
  Serious: Yes (Other)
  Sender: FDA-Public Use
  Company Number: KR-BIAL-BIAL-15570

PATIENT

DRUGS (2)
  1. ESLICARBAZEPINE ACETATE [Suspect]
     Active Substance: ESLICARBAZEPINE ACETATE
     Indication: Epilepsy
     Dosage: 800 MILLIGRAM, DAILY
     Route: 065
  2. PERAMPANEL [Concomitant]
     Active Substance: PERAMPANEL
     Indication: Epilepsy
     Dosage: 4 MILLIGRAM, DAILY
     Route: 065

REACTIONS (1)
  - Seizure [Recovered/Resolved]
